FAERS Safety Report 13854831 (Version 1)
Quarter: 2017Q3

REPORT INFORMATION
  Report Type: Report from Study
  Country: NL (occurrence: NL)
  Receive Date: 20170810
  Receipt Date: 20170810
  Transmission Date: 20171127
  Serious: Yes (Other)
  Sender: FDA-Public Use
  Company Number: NL-EMD SERONO-8074314

PATIENT
  Age: 55 Year
  Sex: Male

DRUGS (4)
  1. PREDNISON [Interacting]
     Active Substance: PREDNISONE
     Indication: GAIT DISTURBANCE
  2. MOMETASON [Concomitant]
     Active Substance: MOMETASONE FUROATE
     Indication: PRODUCT USED FOR UNKNOWN INDICATION
     Dosage: 50UG/DO FL 140DO
     Route: 045
  3. SOLIFENACINE [Concomitant]
     Indication: PRODUCT USED FOR UNKNOWN INDICATION
  4. REBIF [Suspect]
     Active Substance: INTERFERON BETA-1A
     Indication: MULTIPLE SCLEROSIS
     Route: 058
     Dates: start: 20070404

REACTIONS (6)
  - Multiple sclerosis relapse [Recovered/Resolved]
  - Drug interaction [Unknown]
  - Fatigue [Not Recovered/Not Resolved]
  - Respiratory tract infection [Recovering/Resolving]
  - General physical health deterioration [Unknown]
  - Gait disturbance [Not Recovered/Not Resolved]

NARRATIVE: CASE EVENT DATE: 201701
